FAERS Safety Report 5103379-0 (Version None)
Quarter: 2006Q3

REPORT INFORMATION
  Report Type: 
  Country: None (occurrence: None)
  Receive Date: 20060908
  Receipt Date: 20060825
  Transmission Date: 20061208
  Serious: Yes (Death)
  Sender: FDA-Public Use
  Company Number: 2006S1008113

PATIENT
  Age: 60 Year
  Sex: Male

DRUGS (8)
  1. CLOZAPINE [Suspect]
     Indication: SCHIZOAFFECTIVE DISORDER
     Dosage: 200 MG;QAM; PO; 600 MG; HS; PO
     Route: 048
     Dates: start: 20051101, end: 20060701
  2. CLOZAPINE [Suspect]
     Indication: SCHIZOAFFECTIVE DISORDER
     Dosage: 200 MG;QAM; PO; 600 MG; HS; PO
     Route: 048
     Dates: start: 20051101, end: 20060701
  3. OXYCODONE WITH APAP [Concomitant]
  4. DULOXETINE [Concomitant]
  5. HYDROCHLORIDE [Concomitant]
  6. OMEPRAZOLE [Concomitant]
  7. TRIHEXYPHENIDYL HYDROCHLORIDE [Concomitant]
  8. SERTRALINE [Concomitant]

REACTIONS (1)
  - DEATH [None]
